FAERS Safety Report 15952783 (Version 2)
Quarter: 2019Q1

REPORT INFORMATION
  Report Type: Spontaneous
  Country: CH (occurrence: CH)
  Receive Date: 20190212
  Receipt Date: 20190219
  Transmission Date: 20190417
  Serious: Yes (Other)
  Sender: FDA-Public Use
  Company Number: CH-BAXTER-2019BAX002732

PATIENT
  Age: 41 Year
  Sex: Male

DRUGS (7)
  1. ENDOXAN 1 G. TROCKENSUBSTANZ ZUR INTRAVEN?SEN INFUSION [Suspect]
     Active Substance: CYCLOPHOSPHAMIDE
     Dosage: ALSO REPORTED AS 1632 MG
     Route: 065
     Dates: start: 20181010, end: 20181010
  2. ENDOXAN 1 G. TROCKENSUBSTANZ ZUR INTRAVEN?SEN INFUSION [Suspect]
     Active Substance: CYCLOPHOSPHAMIDE
     Dosage: ALSO REPORTED AS 1836 MG
     Route: 065
     Dates: start: 20181108, end: 20181108
  3. PREDNISON [Suspect]
     Active Substance: PREDNISONE
     Dosage: TAPERING
     Route: 048
  4. ENDOXAN 1 G. TROCKENSUBSTANZ ZUR INTRAVEN?SEN INFUSION [Suspect]
     Active Substance: CYCLOPHOSPHAMIDE
     Indication: PRODUCT USED FOR UNKNOWN INDICATION
     Dosage: ALSO REPORTED AS 1194 MG
     Route: 065
     Dates: start: 20180814, end: 20180814
  5. ENDOXAN 1 G. TROCKENSUBSTANZ ZUR INTRAVEN?SEN INFUSION [Suspect]
     Active Substance: CYCLOPHOSPHAMIDE
     Dosage: ALSO REPORTED AS 1407 MG
     Route: 065
     Dates: start: 20180911, end: 20180911
  6. ENDOXAN 1 G. TROCKENSUBSTANZ ZUR INTRAVEN?SEN INFUSION [Suspect]
     Active Substance: CYCLOPHOSPHAMIDE
     Dosage: ALSO REPORTED AS 2040 MG
     Route: 065
     Dates: start: 20181206, end: 20181206
  7. PREDNISON [Suspect]
     Active Substance: PREDNISONE
     Indication: PRODUCT USED FOR UNKNOWN INDICATION
     Route: 048

REACTIONS (3)
  - Neuromyelitis optica spectrum disorder [Unknown]
  - Drug ineffective [Unknown]
  - Optic atrophy [Unknown]

NARRATIVE: CASE EVENT DATE: 20181205
